FAERS Safety Report 22227220 (Version 1)
Quarter: 2023Q2

REPORT INFORMATION
  Report Type: Spontaneous
  Country: ES (occurrence: ES)
  Receive Date: 20230419
  Receipt Date: 20230419
  Transmission Date: 20230721
  Serious: Yes (Hospitalization)
  Sender: FDA-Public Use
  Company Number: None

PATIENT
  Age: 96 Year
  Sex: Male
  Weight: 65 kg

DRUGS (1)
  1. METFORMIN HYDROCHLORIDE [Suspect]
     Active Substance: METFORMIN HYDROCHLORIDE
     Indication: Product used for unknown indication
     Dosage: 1700 MILLIGRAM DAILY; METFORMINA (1359A), 1 TABLET EVERY 12 HOURS FOR 180 DAYS, DURATION : 1636 DAYS
     Route: 065
     Dates: start: 20181004, end: 20230327

REACTIONS (3)
  - Metabolic acidosis [Recovering/Resolving]
  - Chronic kidney disease [Recovering/Resolving]
  - Hypomagnesaemia [Recovering/Resolving]

NARRATIVE: CASE EVENT DATE: 20230327
